FAERS Safety Report 10008908 (Version 1)
Quarter: 2014Q1

REPORT INFORMATION
  Report Type: Spontaneous
  Country: US (occurrence: US)
  Receive Date: 20140313
  Receipt Date: 20140313
  Transmission Date: 20141002
  Serious: No
  Sender: FDA-Public Use
  Company Number: US-INCYTE CORPORATION-2012IN001094

PATIENT
  Age: 54 Year
  Sex: Female

DRUGS (6)
  1. JAKAFI [Suspect]
     Indication: MYELOFIBROSIS
     Dosage: 20 MG, BID
     Route: 048
     Dates: start: 201205
  2. SERTRALINE [Concomitant]
  3. LASIX [Concomitant]
  4. WARFARIN [Concomitant]
  5. POTASSIUM [Concomitant]
  6. ACYCLOVIR [Concomitant]

REACTIONS (3)
  - Diarrhoea [Unknown]
  - Headache [Unknown]
  - Blood count abnormal [Unknown]
